FAERS Safety Report 9410107 (Version 2)
Quarter: 2013Q4

REPORT INFORMATION
  Report Type: Spontaneous
  Country: US (occurrence: US)
  Receive Date: 20130719
  Receipt Date: 20131024
  Transmission Date: 20140711
  Serious: Yes (Hospitalization)
  Sender: FDA-Public Use
  Company Number: US-BAYER-2013-085959

PATIENT
  Age: 22 Year
  Sex: Female
  Weight: 56.69 kg

DRUGS (5)
  1. MIRENA [Suspect]
     Indication: CONTRACEPTION
     Dosage: 20 MCG/24HR, CONT
     Route: 015
     Dates: start: 20071210, end: 20100723
  2. PROVERA [Concomitant]
     Dosage: UNK
     Dates: start: 200805
  3. CYTOTEC [Concomitant]
     Dosage: 100 MCG TAKE ONE IN THE MORNING AND ONE 1-2 HOURS BEFORE APPOINTMENT
     Route: 048
     Dates: start: 20100715
  4. ORTHO EVRA [Concomitant]
     Dosage: UNK
     Route: 023
     Dates: start: 20100708
  5. ORTHO EVRA [Concomitant]
     Dosage: ONR [AS WRITTEN] PATCH TO SKIN WEEKLY FOR 3 WEEKS THEN OFF FOR ONE WEEK
     Dates: start: 2004

REACTIONS (12)
  - Pain [None]
  - Injury [None]
  - Discomfort [None]
  - Emotional distress [None]
  - Procedural pain [None]
  - Irritability [None]
  - Menstruation irregular [None]
  - Mood swings [None]
  - Menorrhagia [None]
  - Device dislocation [None]
  - Device difficult to use [None]
  - Device dislocation [None]
